FAERS Safety Report 10227285 (Version 1)
Quarter: 2014Q2

REPORT INFORMATION
  Report Type: Spontaneous
  Country: GB (occurrence: GB)
  Receive Date: 20140610
  Receipt Date: 20140610
  Transmission Date: 20141212
  Serious: Yes (Other)
  Sender: FDA-Public Use
  Company Number: GB-JNJFOC-20140518232

PATIENT
  Sex: Female

DRUGS (7)
  1. CO-CODAMOL [Suspect]
     Indication: PRODUCT USED FOR UNKNOWN INDICATION
     Route: 065
     Dates: start: 199701
  2. YENTREVE [Suspect]
     Indication: DEPRESSION
     Route: 048
  3. YENTREVE [Suspect]
     Indication: DEPRESSION
     Route: 048
  4. CYMBALTA [Suspect]
     Indication: DEPRESSION
     Route: 048
  5. CYMBALTA [Suspect]
     Indication: DEPRESSION
     Route: 048
     Dates: start: 20140312
  6. PROZAC [Suspect]
     Indication: DEPRESSION
     Route: 048
     Dates: start: 199309, end: 199701
  7. AMITRIPTYLINE [Concomitant]
     Indication: PRODUCT USED FOR UNKNOWN INDICATION
     Route: 065

REACTIONS (8)
  - Suicidal ideation [Recovered/Resolved]
  - Psychomotor hyperactivity [Recovered/Resolved]
  - Insomnia [Recovered/Resolved]
  - Prescribed overdose [Recovered/Resolved]
  - Disturbance in attention [Unknown]
  - Off label use [Recovered/Resolved]
  - Intentional overdose [Recovered/Resolved]
  - Drug ineffective [Unknown]
